FAERS Safety Report 6566277-1 (Version None)
Quarter: 2010Q1

REPORT INFORMATION
  Report Type: 
  Country: None (occurrence: None)
  Receive Date: 20100202
  Receipt Date: 20100122
  Transmission Date: 20100710
  Serious: Yes (Death)
  Sender: FDA-Public Use
  Company Number: JP-BAYER-201010343BYL

PATIENT
  Age: 69 Year
  Sex: Male
  Weight: 65 kg

DRUGS (13)
  1. NEXAVAR [Suspect]
     Indication: HEPATIC NEOPLASM MALIGNANT
     Dosage: UNIT DOSE: 200 MG
     Route: 048
     Dates: start: 20090930, end: 20091216
  2. LASIX [Concomitant]
     Dosage: TOTAL DAILY DOSE: 20 MG
     Route: 048
     Dates: start: 20090914, end: 20091005
  3. EVAMYL [Concomitant]
     Indication: PROPHYLAXIS
     Route: 048
     Dates: start: 20090915, end: 20090923
  4. ALDACTONE [Concomitant]
     Route: 048
     Dates: start: 20090918
  5. LENDORMIN D [Concomitant]
     Indication: PROPHYLAXIS
     Route: 048
     Dates: start: 20090924, end: 20091020
  6. LOXOPROFEN [Concomitant]
     Route: 048
     Dates: start: 20090928, end: 20091001
  7. KERATINAMIN [Concomitant]
     Indication: PROPHYLAXIS
     Route: 061
     Dates: start: 20090929
  8. FAMOTIDINE D [Concomitant]
     Indication: GASTRITIS PROPHYLAXIS
     Route: 048
     Dates: start: 20090930
  9. ALLOID G [Concomitant]
     Indication: GASTRITIS PROPHYLAXIS
     Route: 048
     Dates: start: 20090930, end: 20091003
  10. PYRINAZIN [Concomitant]
     Route: 048
     Dates: start: 20091001, end: 20091001
  11. PONTAL [Concomitant]
     Route: 048
     Dates: start: 20091002, end: 20091001
  12. EURODIN [Concomitant]
     Indication: PROPHYLAXIS
     Route: 048
     Dates: start: 20091021, end: 20091110
  13. RHYTHMY [Concomitant]
     Indication: PROPHYLAXIS
     Route: 048
     Dates: start: 20091111

REACTIONS (5)
  - ALOPECIA [None]
  - DECREASED APPETITE [None]
  - HEPATIC FAILURE [None]
  - HYPERTENSION [None]
  - PALMAR-PLANTAR ERYTHRODYSAESTHESIA SYNDROME [None]
